FAERS Safety Report 12608367 (Version 2)
Quarter: 2017Q1

REPORT INFORMATION
  Report Type: Spontaneous
  Country: US (occurrence: US)
  Receive Date: 20160729
  Receipt Date: 20170112
  Transmission Date: 20170428
  Serious: No
  Sender: FDA-Public Use
  Company Number: US-DEPOMED, INC.-US-2016DEP008257

PATIENT

DRUGS (2)
  1. LAZANDA [Suspect]
     Active Substance: FENTANYL CITRATE
     Indication: PAIN
     Dosage: 1 SPRAY EVERY 4-6 HOURS
     Route: 045
  2. LAZANDA [Suspect]
     Active Substance: FENTANYL CITRATE
     Indication: CROHN^S DISEASE
     Dosage: 1 SPRAY EVERY 4-6 HOURS
     Route: 045
     Dates: start: 201503

REACTIONS (2)
  - Off label use [Not Recovered/Not Resolved]
  - Product container issue [Unknown]
